FAERS Safety Report 21715251 (Version 2)
Quarter: 2023Q1

REPORT INFORMATION
  Report Type: Spontaneous
  Country: JP (occurrence: JP)
  Receive Date: 20221212
  Receipt Date: 20230213
  Transmission Date: 20230418
  Serious: Yes (Death, Hospitalization, Other)
  Sender: FDA-Public Use
  Company Number: JP-GSKJP-JP2022JPN182127AA

PATIENT

DRUGS (7)
  1. ATOVAQUONE [Suspect]
     Active Substance: ATOVAQUONE
     Indication: Antifungal prophylaxis
     Dosage: 5 ML
     Route: 048
  2. AZOSEMIDE TABLET [Concomitant]
     Dosage: 30 MG
     Route: 048
  3. PREDNISOLONE [Concomitant]
     Active Substance: PREDNISOLONE
     Dosage: 5 MG
     Route: 048
  4. APIXABAN [Concomitant]
     Active Substance: APIXABAN
     Dosage: 5 MG
     Route: 048
  5. SIVELESTAT SODIUM FOR IV INFUSION [Concomitant]
     Indication: Prophylaxis
     Dosage: 100 UNK
     Route: 041
  6. METHYLPREDNISOLONE [Concomitant]
     Active Substance: METHYLPREDNISOLONE
     Indication: Prophylaxis
     Dosage: 125 MG
  7. RED BLOOD CELLS SUSPENSION [Concomitant]
     Indication: Anaemia
     Dosage: A TOTAL OF 6 CYCLES

REACTIONS (10)
  - Haemothorax [Unknown]
  - Pneumothorax [Unknown]
  - Shock haemorrhagic [Recovering/Resolving]
  - Pleural effusion [Unknown]
  - Pulmonary haemorrhage [Recovered/Resolved]
  - Anaemia [Unknown]
  - Lung adenocarcinoma stage IV [Unknown]
  - Pneumonia [Fatal]
  - Dyspnoea [Fatal]
  - Depressed level of consciousness [Fatal]
